FAERS Safety Report 12272747 (Version 1)
Quarter: 2016Q2

REPORT INFORMATION
  Report Type: Spontaneous
  Country: DE (occurrence: DE)
  Receive Date: 20160415
  Receipt Date: 20160415
  Transmission Date: 20160815
  Serious: Yes (Other)
  Sender: FDA-Public Use
  Company Number: DE-TEVA-649523GER

PATIENT
  Age: 74 Year
  Sex: Male

DRUGS (12)
  1. RAMIPRIL. [Suspect]
     Active Substance: RAMIPRIL
     Indication: HYPERTENSION
     Dosage: 5 MILLIGRAM DAILY;
     Dates: start: 201511
  2. ZINKOROT 25 [Concomitant]
     Active Substance: ZINC OROTATE
  3. RED YEAST [Concomitant]
     Active Substance: YEAST
  4. PROSTAGUTT FORTE [Concomitant]
     Active Substance: HERBALS
  5. FOSTER [Suspect]
     Active Substance: BECLOMETHASONE\FORMOTEROL
     Dosage: 1 DOSAGE FORMS DAILY;
     Dates: start: 2011, end: 2015
  6. MONTELUKAST [Suspect]
     Active Substance: MONTELUKAST SODIUM
     Dosage: 1 DOSAGE FORMS DAILY; 0-0-1
     Dates: start: 2012
  7. FOSTER [Suspect]
     Active Substance: BECLOMETHASONE\FORMOTEROL
     Dosage: 2 DOSAGE FORMS DAILY;
     Dates: start: 2015
  8. ASS 100 [Concomitant]
     Active Substance: ASPIRIN
     Dosage: 1 DOSAGE FORMS DAILY;
  9. RAMIPRIL. [Suspect]
     Active Substance: RAMIPRIL
     Indication: HYPERTENSION
     Dosage: 2.5 MILLIGRAM DAILY;
     Dates: start: 2014
  10. DEKRISTOL 20000 [Suspect]
     Active Substance: CHOLECALCIFEROL
     Dosage: 2-3 TIMES  A MONTH
  11. SELEN LOGES [Concomitant]
  12. VITAMIN B12 [Concomitant]
     Active Substance: CYANOCOBALAMIN

REACTIONS (22)
  - Nervousness [Unknown]
  - Agitation [Unknown]
  - Feeling cold [Recovered/Resolved]
  - Paraesthesia [Unknown]
  - Chills [Unknown]
  - Weight bearing difficulty [Unknown]
  - Fatigue [Unknown]
  - Hypoaesthesia [Unknown]
  - Micturition disorder [Unknown]
  - Incontinence [Unknown]
  - Exercise tolerance decreased [Unknown]
  - Amnesia [Unknown]
  - Thirst [Unknown]
  - Sleep disorder [Unknown]
  - Nasopharyngitis [Unknown]
  - Abdominal pain [Unknown]
  - Arthropathy [Unknown]
  - Abdominal distension [Unknown]
  - Dyspnoea [Unknown]
  - Dyspnoea [Unknown]
  - Confusional state [Unknown]
  - Premature ageing [Unknown]

NARRATIVE: CASE EVENT DATE: 2015
